FAERS Safety Report 4451026-3 (Version None)
Quarter: 2004Q3

REPORT INFORMATION
  Report Type: 
  Country: None (occurrence: None)
  Receive Date: 20040916
  Receipt Date: 20040708
  Transmission Date: 20050211
  Serious: Yes (Other)
  Sender: FDA-Public Use
  Company Number: US-BRISTOL-MYERS SQUIBB COMPANY-12639258

PATIENT
  Age: 38 Year
  Sex: Male

DRUGS (3)
  1. STADOL [Suspect]
     Indication: MIGRAINE
     Route: 045
     Dates: start: 19940301
  2. STADOL [Suspect]
     Indication: MIGRAINE
     Route: 030
     Dates: start: 19940301
  3. PHENERGAN HCL [Concomitant]
     Indication: MIGRAINE
     Route: 030

REACTIONS (1)
  - DEPENDENCE [None]
